FAERS Safety Report 24234014 (Version 4)
Quarter: 2025Q4

REPORT INFORMATION
  Report Type: Spontaneous
  Country: AU (occurrence: AU)
  Receive Date: 20240821
  Receipt Date: 20251201
  Transmission Date: 20260118
  Serious: Yes (Life-Threatening, Hospitalization, Disabling, Other)
  Sender: PFIZER
  Company Number: AU-MLMSERVICE-20240812-PI159359-00306-1

PATIENT
  Age: 51 Year
  Sex: Female

DRUGS (10)
  1. METHYLPREDNISOLONE SODIUM SUCCINATE [Suspect]
     Active Substance: METHYLPREDNISOLONE SODIUM SUCCINATE
     Indication: Transplant rejection
     Dosage: UNK, INDUCTION
  2. METHYLPREDNISOLONE SODIUM SUCCINATE [Suspect]
     Active Substance: METHYLPREDNISOLONE SODIUM SUCCINATE
     Indication: Immunosuppressant drug therapy
     Dosage: 1 G
     Route: 042
  3. METHYLPREDNISOLONE SODIUM SUCCINATE [Suspect]
     Active Substance: METHYLPREDNISOLONE SODIUM SUCCINATE
     Dosage: 500 MG IV PULSES THE FOLLOWING TWO DAYS
     Route: 042
  4. THYMOCYTE IMMUNE GLOBULIN NOS [Suspect]
     Active Substance: THYMOCYTE IMMUNE GLOBULIN NOS
     Dosage: ATG 125 MG/DAILY WAS ADMINISTERED OVER A 3-DAY PERIOD COMMENCING DAY 3 POST-TRANSPLANTATION
  5. TACROLIMUS [Suspect]
     Active Substance: TACROLIMUS
     Indication: Immunosuppressant drug therapy
     Dosage: 4 MG, 2X/DAY
  6. TACROLIMUS [Suspect]
     Active Substance: TACROLIMUS
     Dosage: TWICE DAILY ON DAY 6 AFTER A RETURN TO BASELINE CREATININE
  7. TACROLIMUS [Suspect]
     Active Substance: TACROLIMUS
     Dosage: TWICE DAILY ON DAY 9
  8. MYCOPHENOLATE MOFETIL [Concomitant]
     Active Substance: MYCOPHENOLATE MOFETIL
     Indication: Immunosuppressant drug therapy
     Dosage: INDUCTION
  9. PREDNISOLONE [Concomitant]
     Active Substance: PREDNISOLONE
     Indication: Immunosuppressant drug therapy
     Dosage: UNK
     Route: 048
  10. BASILIXIMAB [Concomitant]
     Active Substance: BASILIXIMAB
     Indication: Immunosuppressant drug therapy
     Dosage: INDUCTION

REACTIONS (5)
  - Reversible cerebral vasoconstriction syndrome [Recovered/Resolved with Sequelae]
  - Visual field defect [Not Recovered/Not Resolved]
  - Muscular weakness [Not Recovered/Not Resolved]
  - Aphasia [Not Recovered/Not Resolved]
  - Fine motor skill dysfunction [Not Recovered/Not Resolved]
